FAERS Safety Report 7253387-9 (Version None)
Quarter: 2011Q1

REPORT INFORMATION
  Report Type: 
  Country: None (occurrence: None)
  Receive Date: 20110129
  Receipt Date: 20100317
  Transmission Date: 20110831
  Serious: No
  Sender: FDA-Public Use
  Company Number: US-ABBOTT-10P-163-0629407-00

PATIENT
  Sex: Male
  Weight: 66.738 kg

DRUGS (2)
  1. HUMIRA [Suspect]
     Indication: ANKYLOSING SPONDYLITIS
  2. HUMIRA [Suspect]
     Indication: CROHN'S DISEASE
     Dates: start: 20090708

REACTIONS (3)
  - WRIST FRACTURE [None]
  - FALL [None]
  - LOWER LIMB FRACTURE [None]
